FAERS Safety Report 6829792-9 (Version None)
Quarter: 2010Q3

REPORT INFORMATION
  Report Type: 
  Country: None (occurrence: None)
  Receive Date: 20100709
  Receipt Date: 20080119
  Transmission Date: 20110219
  Serious: Yes (Hospitalization, Other)
  Sender: FDA-Public Use
  Company Number: US-PFIZER INC-2007018434

PATIENT
  Sex: Male
  Weight: 59 kg

DRUGS (11)
  1. CHANTIX [Suspect]
     Indication: EX-TOBACCO USER
     Dates: start: 20070201, end: 20070301
  2. CHANTIX [Suspect]
     Indication: CHRONIC OBSTRUCTIVE PULMONARY DISEASE
  3. CHANTIX [Suspect]
     Indication: HYPERTENSION
  4. CHANTIX [Suspect]
     Indication: GASTROOESOPHAGEAL REFLUX DISEASE
  5. ANTIHYPERTENSIVES [Concomitant]
  6. AMBIEN [Concomitant]
  7. HYDROCHLOROTHIAZIDE [Concomitant]
  8. SPIRIVA [Concomitant]
     Dosage: DAILY
     Route: 055
  9. ALBUTEROL [Concomitant]
     Route: 055
  10. MONTELUKAST SODIUM [Concomitant]
     Dosage: DAILY
  11. ADVAIR DISKUS 100/50 [Concomitant]

REACTIONS (1)
  - CHEST PAIN [None]
